FAERS Safety Report 6665845-6 (Version None)
Quarter: 2010Q1

REPORT INFORMATION
  Report Type: 
  Country: None (occurrence: None)
  Receive Date: 20100329
  Receipt Date: 20090814
  Transmission Date: 20100710
  Serious: No
  Sender: FDA-Public Use
  Company Number: 2009-00476

PATIENT
  Age: 53 Year
  Sex: Male

DRUGS (1)
  1. ZICAM NASAL PRODUCTS [Suspect]
     Dosage: AS DIREDTED ; FALL 2008 - (?)

REACTIONS (1)
  - ANOSMIA [None]
